FAERS Safety Report 16973795 (Version 4)
Quarter: 2020Q3

REPORT INFORMATION
  Report Type: Report from Study
  Country: US (occurrence: US)
  Receive Date: 20191030
  Receipt Date: 20200109
  Transmission Date: 20201104
  Serious: Yes (Other)
  Sender: FDA-Public Use
  Company Number: US-ROCHE-2446940

PATIENT
  Sex: Female

DRUGS (3)
  1. ATEZOLIZUMAB. [Suspect]
     Active Substance: ATEZOLIZUMAB
     Indication: HORMONE RECEPTOR POSITIVE BREAST CANCER
     Dosage: OVER 60 MINUTES STARTING WITH DAY 15 OF COURSE 1 AND THEN ON DAYS 1 AND 15 OF SUBSEQUENT COURSES.
     Route: 042
  2. COBIMETINIB. [Suspect]
     Active Substance: COBIMETINIB
     Indication: HORMONE RECEPTOR POSITIVE BREAST CANCER
     Route: 048
  3. IDASANUTLIN. [Suspect]
     Active Substance: IDASANUTLIN
     Indication: BREAST CANCER METASTATIC
     Dosage: DAILY ON DAYS 1?5
     Route: 048

REACTIONS (1)
  - Pancytopenia [Not Recovered/Not Resolved]

NARRATIVE: CASE EVENT DATE: 20191016
